FAERS Safety Report 7096341-2 (Version None)
Quarter: 2010Q4

REPORT INFORMATION
  Report Type: 
  Country: None (occurrence: None)
  Receive Date: 20101111
  Receipt Date: 20101015
  Transmission Date: 20110411
  Serious: Yes (Hospitalization)
  Sender: FDA-Public Use
  Company Number: GB-B.I. PHARMACEUTICALS,INC./RIDGEFIELD-2010-UK-01001UK

PATIENT
  Age: 79 Year
  Sex: Male
  Weight: 66.5 kg

DRUGS (9)
  1. SPIRIVA [Suspect]
     Indication: CHRONIC OBSTRUCTIVE PULMONARY DISEASE
     Dosage: 1 ANZ
     Route: 055
     Dates: start: 20090414, end: 20100517
  2. SPIRIVA [Suspect]
     Indication: DYSPNOEA EXERTIONAL
  3. ASPIRIN [Concomitant]
     Route: 048
  4. FINASTERIDE [Concomitant]
     Route: 048
  5. VERAPAMIL [Concomitant]
     Route: 048
  6. TAMSULOSIN [Concomitant]
     Route: 048
  7. OMEPRAZOLE [Concomitant]
     Route: 048
  8. ALENDRONIC ACID [Concomitant]
     Route: 048
  9. SERETIDE 500 [Concomitant]
     Route: 048

REACTIONS (6)
  - CHEST DISCOMFORT [None]
  - DIZZINESS [None]
  - DYSPNOEA [None]
  - ERUCTATION [None]
  - PAIN IN EXTREMITY [None]
  - URINARY RETENTION [None]
